FAERS Safety Report 7314874-8 (Version None)
Quarter: 2011Q1

REPORT INFORMATION
  Report Type: 
  Country: None (occurrence: None)
  Receive Date: 20110217
  Receipt Date: 20110217
  Transmission Date: 20110831
  Serious: Yes (Life-Threatening, Hospitalization, Disabling)
  Sender: FDA-Public Use
  Company Number: None

PATIENT
  Age: 77 Year
  Sex: Female
  Weight: 64 kg

DRUGS (8)
  1. CARDIZEM [Concomitant]
  2. DEXAMETHASONE. [Concomitant]
  3. HYCODAN PRN [Concomitant]
  4. HEPARIN LOCK-FLUSH [Concomitant]
  5. PAZOPANIB 200 MG GLAXOSMITHKLINE [Suspect]
     Indication: LEIOMYOSARCOMA METASTATIC
     Dosage: 200 MG BID PO
     Route: 048
     Dates: start: 20101214, end: 20110127
  6. SENNA PRN [Concomitant]
  7. ZOFRAN [Concomitant]
  8. TUMS PRN [Concomitant]

REACTIONS (5)
  - DECREASED APPETITE [None]
  - VIITH NERVE PARALYSIS [None]
  - WEIGHT DECREASED [None]
  - FATIGUE [None]
  - MEMORY IMPAIRMENT [None]
